FAERS Safety Report 9939786 (Version 1)
Quarter: 2014Q1

REPORT INFORMATION
  Report Type: Spontaneous
  Country: US (occurrence: US)
  Receive Date: 20140303
  Receipt Date: 20140303
  Transmission Date: 20141002
  Serious: No
  Sender: FDA-Public Use
  Company Number: US-ABBVIE-13P-163-1036475-00

PATIENT
  Sex: 0

DRUGS (5)
  1. HUMIRA [Suspect]
     Indication: PRODUCT USED FOR UNKNOWN INDICATION
  2. ASACOL [Concomitant]
     Indication: PRODUCT USED FOR UNKNOWN INDICATION
     Dates: start: 2007, end: 2010
  3. CIPRO [Concomitant]
     Indication: PRODUCT USED FOR UNKNOWN INDICATION
     Dosage: + FLAGYL 500MG
  4. PAXIL [Concomitant]
     Indication: PRODUCT USED FOR UNKNOWN INDICATION
  5. FLAGYL [Concomitant]
     Indication: PRODUCT USED FOR UNKNOWN INDICATION
     Dosage: 500MG + CIPRO

REACTIONS (6)
  - Dry skin [Unknown]
  - Pruritus [Unknown]
  - Pruritus [Unknown]
  - Adverse drug reaction [Unknown]
  - Feeling abnormal [Unknown]
  - Abscess [Unknown]
